FAERS Safety Report 6274368-8 (Version None)
Quarter: 2009Q3

REPORT INFORMATION
  Report Type: 
  Country: None (occurrence: None)
  Receive Date: 20090720
  Receipt Date: 20090717
  Transmission Date: 20100115
  Serious: Yes (Other)
  Sender: FDA-Public Use
  Company Number: FR-WYE-G03117709

PATIENT
  Sex: Female

DRUGS (8)
  1. BENEFIX [Suspect]
     Indication: FACTOR IX DEFICIENCY
     Route: 042
     Dates: start: 20081125, end: 20081128
  2. BENEFIX [Suspect]
     Route: 042
     Dates: start: 20081129, end: 20081204
  3. EXACYL [Concomitant]
     Dosage: 3 TO 5 TABLETS PER DAY
     Route: 048
     Dates: start: 20081205, end: 20081225
  4. TARDYFERON [Concomitant]
     Dosage: UNKNOWN
  5. DAFALGAN [Concomitant]
     Dosage: UNKNOWN
  6. AUGMENTIN [Concomitant]
     Route: 048
  7. LOVENOX [Concomitant]
     Indication: PROPHYLAXIS
     Dosage: UNKNOWN
     Dates: start: 20081125, end: 20081204
  8. CERAZETTE [Concomitant]
     Route: 048
     Dates: start: 20081201

REACTIONS (8)
  - COAGULATION FACTOR IX LEVEL DECREASED [None]
  - COUGH [None]
  - DRUG EXPOSURE DURING PREGNANCY [None]
  - ECCHYMOSIS [None]
  - FACTOR IX INHIBITION [None]
  - HAEMARTHROSIS [None]
  - HAEMATOCHEZIA [None]
  - PYREXIA [None]
